FAERS Safety Report 8046523-8 (Version None)
Quarter: 2012Q1

REPORT INFORMATION
  Report Type: 
  Country: None (occurrence: None)
  Receive Date: 20120113
  Receipt Date: 20120104
  Transmission Date: 20120608
  Serious: Yes (Other)
  Sender: FDA-Public Use
  Company Number: US-ASTRAZENECA-2011SE70405

PATIENT
  Age: 63 Year
  Sex: Female

DRUGS (2)
  1. NEXIUM [Suspect]
     Route: 048
  2. OMEPRAZOLE [Suspect]
     Route: 048

REACTIONS (6)
  - HAEMATEMESIS [None]
  - VOMITING [None]
  - ULCER HAEMORRHAGE [None]
  - DRUG DOSE OMISSION [None]
  - DIARRHOEA [None]
  - CONDITION AGGRAVATED [None]
